FAERS Safety Report 17045258 (Version 4)
Quarter: 2019Q4

REPORT INFORMATION
  Report Type: Report from Study
  Country: IT (occurrence: IT)
  Receive Date: 20191118
  Receipt Date: 20191210
  Transmission Date: 20200122
  Serious: Yes (Disabling, Other)
  Sender: FDA-Public Use
  Company Number: IT-VALIDUS PHARMACEUTICALS LLC-IT-2019VAL000726

PATIENT

DRUGS (4)
  1. AGALSIDASE BETA [Suspect]
     Active Substance: AGALSIDASE BETA
     Dosage: UNK
     Route: 041
  2. TRENTAL [Suspect]
     Active Substance: PENTOXIFYLLINE
     Indication: PRODUCT USED FOR UNKNOWN INDICATION
     Dosage: 400 MG, UNK
     Route: 065
     Dates: start: 20191103
  3. AGALSIDASE BETA [Suspect]
     Active Substance: AGALSIDASE BETA
     Indication: FABRY^S DISEASE
     Dosage: 2 DF, EVERY TWO WEEKS
     Route: 041
     Dates: start: 20140205
  4. CARDIOASPIRIN [Concomitant]
     Active Substance: ASPIRIN
     Indication: PRODUCT USED FOR UNKNOWN INDICATION
     Dosage: UNK

REACTIONS (7)
  - Bedridden [Recovering/Resolving]
  - Dysentery [Recovering/Resolving]
  - Proteinuria [Unknown]
  - Drop attacks [Recovering/Resolving]
  - General physical health deterioration [Unknown]
  - Asthenia [Recovering/Resolving]
  - Microalbuminuria [Unknown]

NARRATIVE: CASE EVENT DATE: 201910
